FAERS Safety Report 5662605-X (Version None)
Quarter: 2008Q1

REPORT INFORMATION
  Report Type: 
  Country: None (occurrence: None)
  Receive Date: 20080310
  Receipt Date: 20080310
  Transmission Date: 20080703
  Serious: No
  Sender: FDA-Public Use
  Company Number: None

PATIENT
  Age: 55 Year
  Sex: Male
  Weight: 70 kg

DRUGS (1)
  1. CLOZAPINE [Suspect]
     Dosage: 550 MG DAILY PO
     Route: 048

REACTIONS (1)
  - HYPOTENSION [None]
